FAERS Safety Report 14800545 (Version 1)
Quarter: 2018Q2

REPORT INFORMATION
  Report Type: Spontaneous
  Country: US (occurrence: US)
  Receive Date: 20180424
  Receipt Date: 20180424
  Transmission Date: 20180711
  Serious: No
  Sender: FDA-Public Use
  Company Number: US-009507513-1804USA009412

PATIENT
  Sex: Male

DRUGS (1)
  1. INTRON A [Suspect]
     Active Substance: INTERFERON ALFA-2B
     Indication: CHRONIC KIDNEY DISEASE
     Dosage: 2.2 ML, 3 TIMES WEEKLY (5MU/0.5ML, 25 MU MDV)
     Route: 058
     Dates: start: 201801

REACTIONS (1)
  - Adverse event [Unknown]
